FAERS Safety Report 21265009 (Version 1)
Quarter: 2022Q3

REPORT INFORMATION
  Report Type: Spontaneous
  Country: US (occurrence: None)
  Receive Date: 20220826
  Receipt Date: 20220826
  Transmission Date: 20221026
  Serious: Yes (Disabling)
  Sender: FDA-Public Use
  Company Number: None

PATIENT
  Age: 29 Year
  Sex: Male
  Weight: 99 kg

DRUGS (7)
  1. LYBALVI [Suspect]
     Active Substance: OLANZAPINE\SAMIDORPHAN L-MALATE
     Indication: Major depression
     Dosage: OTHER QUANTITY : 1 TABLET(S);?FREQUENCY : AT BEDTIME;?
     Route: 048
     Dates: start: 20220715, end: 20220723
  2. ADDERALL [Concomitant]
     Active Substance: AMPHETAMINE ASPARTATE\AMPHETAMINE SULFATE\DEXTROAMPHETAMINE SACCHARATE\DEXTROAMPHETAMINE SULFATE
  3. VILAZODONE [Concomitant]
     Active Substance: VILAZODONE
  4. GABAPENTIN [Concomitant]
     Active Substance: GABAPENTIN
  5. CALCIUM [Concomitant]
     Active Substance: CALCIUM
  6. MAGNESIUM [Concomitant]
     Active Substance: MAGNESIUM
  7. zinc supplements [Concomitant]

REACTIONS (2)
  - Muscular weakness [None]
  - Pain [None]

NARRATIVE: CASE EVENT DATE: 20220717
